FAERS Safety Report 8281799-3 (Version None)
Quarter: 2012Q2

REPORT INFORMATION
  Report Type: 
  Country: None (occurrence: None)
  Receive Date: 20120413
  Receipt Date: 20120402
  Transmission Date: 20120825
  Serious: Yes (Hospitalization)
  Sender: FDA-Public Use
  Company Number: PHHY2011FR111540

PATIENT
  Sex: Female

DRUGS (16)
  1. NEORAL [Suspect]
     Indication: RENAL TRANSPLANT
     Dates: start: 20111101, end: 20111129
  2. SOTALOL HCL [Concomitant]
     Dosage: 80 MG, BID
  3. RAPAMUNE [Concomitant]
  4. PREDNISONE TAB [Concomitant]
     Dosage: 10 MG, QD
  5. PROGRAF [Concomitant]
     Dosage: 3.5 MG, UNK
  6. VALSARTAN [Concomitant]
  7. PREDNISONE TAB [Concomitant]
     Dates: start: 20050101
  8. OMEPRAZOLE [Concomitant]
     Dosage: 20 MG, QD
  9. COLCHICINE [Interacting]
     Dosage: 1 MG, UNK
  10. MYCOPHENOLATE MOFETIL (CELLCEPT) [Concomitant]
     Indication: IMMUNOSUPPRESSION
     Dosage: 500 MG, BID
     Dates: start: 20050101
  11. CRESTOR [Interacting]
     Indication: DYSLIPIDAEMIA
     Dosage: 10 MG, DAILY
     Dates: start: 20110601, end: 20111117
  12. COLCHICINE [Interacting]
     Indication: FAMILIAL MEDITERRANEAN FEVER
     Dosage: 1.5 MG, DAILY
     Dates: end: 20111120
  13. LASIX [Concomitant]
  14. VALSARTAN [Concomitant]
     Dosage: 80 MG, QD
  15. SOTALOL HCL [Concomitant]
  16. PROGRAF [Concomitant]

REACTIONS (16)
  - MYALGIA [None]
  - DRUG INTERACTION [None]
  - HYPOKINESIA [None]
  - INFLAMMATION [None]
  - THYROID NEOPLASM [None]
  - MUSCULAR WEAKNESS [None]
  - HYPOREFLEXIA [None]
  - AMYOTROPHY [None]
  - NASAL MUCOSAL DISORDER [None]
  - RHABDOMYOLYSIS [None]
  - DYSARTHRIA [None]
  - BLOOD CREATINE PHOSPHOKINASE INCREASED [None]
  - LUNG INFECTION [None]
  - KNEE DEFORMITY [None]
  - TACHYPNOEA [None]
  - MALNUTRITION [None]
